FAERS Safety Report 18724389 (Version 9)
Quarter: 2022Q2

REPORT INFORMATION
  Report Type: Other
  Country: CA (occurrence: None)
  Receive Date: 20210111
  Receipt Date: 20220615
  Transmission Date: 20220721
  Serious: Yes (Other)
  Sender: FDA-Public Use
  Company Number: CA-ROCHE-2746804

PATIENT
  Age: 80 Year
  Sex: Female

DRUGS (8)
  1. ACTEMRA [Suspect]
     Active Substance: TOCILIZUMAB
     Indication: Rheumatoid arthritis
     Route: 042
     Dates: start: 20200529
  2. DULOXETINE [Concomitant]
     Active Substance: DULOXETINE
     Indication: Pain in extremity
  3. DULOXETINE [Concomitant]
     Active Substance: DULOXETINE
     Indication: Back pain
  4. MIRABEGRON [Concomitant]
     Active Substance: MIRABEGRON
  5. NITROFURANTOIN [Concomitant]
     Active Substance: NITROFURANTOIN
  6. PREMARIN [Concomitant]
     Active Substance: ESTROGENS, CONJUGATED
  7. RISEDRONATE SODIUM [Concomitant]
     Active Substance: RISEDRONATE SODIUM
  8. VALACYCLOVIR [Concomitant]
     Active Substance: VALACYCLOVIR HYDROCHLORIDE
     Indication: Herpes zoster
     Route: 048
     Dates: start: 20210508, end: 20210514

REACTIONS (1)
  - Cystitis [Not Recovered/Not Resolved]

NARRATIVE: CASE EVENT DATE: 20220401
